FAERS Safety Report 5051953-2 (Version None)
Quarter: 2006Q3

REPORT INFORMATION
  Report Type: 
  Country: None (occurrence: None)
  Receive Date: 20060710
  Receipt Date: 20060630
  Transmission Date: 20061208
  Serious: Yes (Hospitalization)
  Sender: FDA-Public Use
  Company Number: US017748

PATIENT
  Age: 43 Year
  Sex: Male
  Weight: 89.8122 kg

DRUGS (2)
  1. PROVIGIL [Suspect]
     Indication: DRUG DEPENDENCE
     Dates: start: 20060526, end: 20060602
  2. PLACEBO [Suspect]
     Indication: DRUG DEPENDENCE
     Dates: start: 20060526, end: 20060602

REACTIONS (3)
  - DRUG ABUSER [None]
  - MANIA [None]
  - SUICIDAL IDEATION [None]
